FAERS Safety Report 21050024 (Version 1)
Quarter: 2022Q3

REPORT INFORMATION
  Report Type: Spontaneous
  Country: CN (occurrence: CN)
  Receive Date: 20220706
  Receipt Date: 20220706
  Transmission Date: 20221027
  Serious: Yes (Hospitalization, Disabling, Other)
  Sender: FDA-Public Use
  Company Number: CN-009507513-2207CHN000657

PATIENT
  Age: 54 Year
  Sex: Male
  Weight: 50 kg

DRUGS (1)
  1. NOXAFIL [Suspect]
     Active Substance: POSACONAZOLE
     Indication: Anti-infective therapy
     Dosage: 100 MG, QD
     Route: 048
     Dates: start: 20210610, end: 20220628

REACTIONS (3)
  - Hepatic cirrhosis [Unknown]
  - Pleural effusion [Unknown]
  - Product use issue [Unknown]

NARRATIVE: CASE EVENT DATE: 20210610
